FAERS Safety Report 12653626 (Version 1)
Quarter: 2016Q3

REPORT INFORMATION
  Report Type: Spontaneous
  Country: US (occurrence: US)
  Receive Date: 20160815
  Receipt Date: 20160815
  Transmission Date: 20161109
  Serious: No
  Sender: FDA-Public Use
  Company Number: US-ASTRAZENECA-2016SE67183

PATIENT
  Age: 65 Year
  Sex: Female

DRUGS (14)
  1. VITAMIN D3 [Concomitant]
     Active Substance: CHOLECALCIFEROL
     Route: 048
  2. LORATIDINE [Concomitant]
     Active Substance: LORATADINE
     Indication: HYPERSENSITIVITY
     Route: 048
  3. BEANO [Concomitant]
     Active Substance: ASPERGILLUS NIGER .ALPHA.-GALACTOSIDASE
     Route: 048
  4. GLIPIZIDE. [Concomitant]
     Active Substance: GLIPIZIDE
     Indication: DIABETES MELLITUS
     Route: 048
  5. GARLIC. [Concomitant]
     Active Substance: GARLIC
     Indication: ILL-DEFINED DISORDER
     Route: 048
  6. CRESTOR [Suspect]
     Active Substance: ROSUVASTATIN CALCIUM
     Indication: BLOOD CHOLESTEROL ABNORMAL
     Route: 048
     Dates: start: 2015
  7. LOSARTAN POTASSIUM. [Concomitant]
     Active Substance: LOSARTAN POTASSIUM
     Indication: HYPERTENSION
     Route: 048
  8. GLIPIZIDE ER [Concomitant]
     Active Substance: GLIPIZIDE
     Indication: DIABETES MELLITUS
     Route: 048
  9. METFORMIN HYDROCHLORIDE. [Concomitant]
     Active Substance: METFORMIN HYDROCHLORIDE
     Indication: DIABETES MELLITUS
     Route: 048
  10. LACTAID [Concomitant]
     Active Substance: LACTASE
     Route: 048
  11. METFORMIN HYDROCHLORIDE. [Concomitant]
     Active Substance: METFORMIN HYDROCHLORIDE
     Indication: DIABETES MELLITUS
     Route: 048
  12. OSTEOBIFLEX [Concomitant]
     Indication: ARTHRALGIA
     Route: 048
  13. OSTEOBIFLEX [Concomitant]
     Indication: MYALGIA
     Route: 048
  14. COQ10 [Concomitant]
     Active Substance: UBIDECARENONE
     Indication: ADJUVANT THERAPY
     Route: 048

REACTIONS (15)
  - Fatigue [Unknown]
  - Blood cholesterol increased [Unknown]
  - Off label use [Unknown]
  - Intentional product misuse [Unknown]
  - Physical disability [Unknown]
  - Myalgia [Unknown]
  - Musculoskeletal stiffness [Unknown]
  - Trigger finger [Unknown]
  - Rheumatoid factor increased [Unknown]
  - Body height decreased [Unknown]
  - Arthralgia [Unknown]
  - Drug dose omission [Unknown]
  - Magnesium deficiency [Unknown]
  - Moaning [Unknown]
  - Crying [Unknown]

NARRATIVE: CASE EVENT DATE: 2016
